FAERS Safety Report 20534020 (Version 1)
Quarter: 2022Q1

REPORT INFORMATION
  Report Type: Other
  Country: US (occurrence: None)
  Receive Date: 20220301
  Receipt Date: 20220301
  Transmission Date: 20220423
  Serious: No
  Sender: FDA-Public Use
  Company Number: US-ROCHE-3034067

PATIENT
  Age: 38 Year
  Sex: Female

DRUGS (1)
  1. OCREVUS [Suspect]
     Active Substance: OCRELIZUMAB
     Indication: Relapsing multiple sclerosis
     Dosage: DATE OF PREVIOUS INFUSION: 24/MAY/2019, 07/JUN/2019, DATE OF NEXT INFUSION: 24/NOV/2019, 30/DEC/2021
     Route: 065
     Dates: start: 20190524

REACTIONS (2)
  - COVID-19 [Recovered/Resolved]
  - Gastroenteritis [Recovered/Resolved]

NARRATIVE: CASE EVENT DATE: 20220107
